FAERS Safety Report 9204808 (Version 2)
Quarter: 2013Q2

REPORT INFORMATION
  Report Type: Report from Study
  Country: MW (occurrence: MW)
  Receive Date: 20130402
  Receipt Date: 20130418
  Transmission Date: 20140414
  Serious: Yes (Hospitalization)
  Sender: FDA-Public Use
  Company Number: MW-BRISTOL-MYERS SQUIBB COMPANY-18723148

PATIENT
  Age: 27 Year
  Sex: Female
  Weight: 52.5 kg

DRUGS (5)
  1. STOCRIN CAPS [Suspect]
     Indication: HIV INFECTION
     Route: 048
     Dates: start: 20130116
  2. TENOFOVIR DF + EMTRICITABINE [Suspect]
     Indication: HIV INFECTION
     Dosage: 1DF=200/300MG
     Route: 048
     Dates: start: 20130116
  3. ISONIAZID [Suspect]
     Indication: TUBERCULOSIS
     Route: 048
     Dates: start: 20130117
  4. PYRIDOXINE [Concomitant]
  5. CO-TRIMOXAZOLE [Concomitant]

REACTIONS (1)
  - Meningitis [Not Recovered/Not Resolved]
